FAERS Safety Report 14950668 (Version 1)
Quarter: 2018Q2

REPORT INFORMATION
  Report Type: Spontaneous
  Country: TW (occurrence: TW)
  Receive Date: 20180530
  Receipt Date: 20180530
  Transmission Date: 20180711
  Serious: Yes (Hospitalization)
  Sender: FDA-Public Use
  Company Number: PHHY2018TW005141

PATIENT
  Age: 57 Year
  Sex: Male

DRUGS (1)
  1. AMIODARONE [Suspect]
     Active Substance: AMIODARONE
     Indication: ATRIAL FIBRILLATION
     Dosage: 200 MG, QD
     Route: 065

REACTIONS (10)
  - Hyperthyroidism [Recovered/Resolved]
  - Pulmonary oedema [Unknown]
  - Respiratory distress [Unknown]
  - Thyrotoxic crisis [Recovered/Resolved]
  - Cardiac failure [Unknown]
  - Palpitations [Unknown]
  - Concomitant disease aggravated [Unknown]
  - Chest discomfort [Unknown]
  - Oedema peripheral [Unknown]
  - Acute respiratory failure [Unknown]
